FAERS Safety Report 13769921 (Version 1)
Quarter: 2017Q3

REPORT INFORMATION
  Report Type: Spontaneous
  Country: US (occurrence: US)
  Receive Date: 20170719
  Receipt Date: 20170719
  Transmission Date: 20171127
  Serious: Yes (Death, Other)
  Sender: FDA-Public Use
  Company Number: US-BRISTOL-MYERS SQUIBB COMPANY-BMS-2017-064377

PATIENT
  Sex: Male

DRUGS (2)
  1. YERVOY [Suspect]
     Active Substance: IPILIMUMAB
     Indication: OESOPHAGEAL CARCINOMA
     Dosage: 3 MG/KG, UNK
     Route: 042
  2. OPDIVO [Suspect]
     Active Substance: NIVOLUMAB
     Indication: OESOPHAGEAL CARCINOMA
     Dosage: 1 MG/KG, UNK
     Route: 042

REACTIONS (2)
  - Product use in unapproved indication [Unknown]
  - Death [Fatal]
